FAERS Safety Report 21506231 (Version 2)
Quarter: 2022Q4

REPORT INFORMATION
  Report Type: Spontaneous
  Country: NL (occurrence: NL)
  Receive Date: 20221026
  Receipt Date: 20221201
  Transmission Date: 20230113
  Serious: Yes (Other)
  Sender: FDA-Public Use
  Company Number: NL-ABBVIE-4174644

PATIENT
  Sex: Male

DRUGS (1)
  1. RINVOQ [Suspect]
     Active Substance: UPADACITINIB
     Indication: Eczema
     Route: 048

REACTIONS (2)
  - Bacterial infection [Unknown]
  - Non-Hodgkin^s lymphoma [Unknown]

NARRATIVE: CASE EVENT DATE: 20220101
